FAERS Safety Report 21830858 (Version 4)
Quarter: 2023Q2

REPORT INFORMATION
  Report Type: Spontaneous
  Country: CA (occurrence: CA)
  Receive Date: 20230106
  Receipt Date: 20230510
  Transmission Date: 20230721
  Serious: Yes (Hospitalization, Other)
  Sender: FDA-Public Use
  Company Number: CA-JNJFOC-20221264311

PATIENT
  Age: 3 Decade
  Sex: Female
  Weight: 59 kg

DRUGS (18)
  1. SIMPONI [Suspect]
     Active Substance: GOLIMUMAB
     Indication: Crohn^s disease
     Route: 058
     Dates: start: 20201005
  2. SIMPONI [Suspect]
     Active Substance: GOLIMUMAB
     Route: 058
  3. STELARA [Suspect]
     Active Substance: USTEKINUMAB
     Indication: Crohn^s disease
     Route: 058
     Dates: start: 20200207
  4. INFLECTRA [Suspect]
     Active Substance: INFLIXIMAB-DYYB
     Indication: Crohn^s disease
     Route: 042
     Dates: start: 2017
  5. INFLECTRA [Suspect]
     Active Substance: INFLIXIMAB-DYYB
     Route: 042
     Dates: start: 20200620
  6. INFLECTRA [Suspect]
     Active Substance: INFLIXIMAB-DYYB
     Route: 042
     Dates: start: 20220720
  7. HUMIRA [Suspect]
     Active Substance: ADALIMUMAB
     Indication: Crohn^s disease
     Route: 065
     Dates: start: 201510
  8. AZATHIOPRINE [Suspect]
     Active Substance: AZATHIOPRINE
     Indication: Crohn^s disease
     Route: 065
     Dates: start: 20210419
  9. THIAMINE HYDROCHLORIDE [Concomitant]
     Active Substance: THIAMINE HYDROCHLORIDE
     Route: 065
  10. COVID-19 VACCINE [Concomitant]
     Indication: COVID-19 immunisation
     Route: 065
  11. INFLIXIMAB [Concomitant]
     Active Substance: INFLIXIMAB
     Route: 065
  12. VITAMIN D NOS [Concomitant]
     Active Substance: VITAMIN D NOS
     Route: 065
  13. CORTISOL [HYDROCORTISONE] [Concomitant]
  14. FERINJECT [Concomitant]
     Active Substance: FERRIC CARBOXYMALTOSE
     Indication: Iron deficiency
  15. FOLATE SODIUM [Concomitant]
     Active Substance: FOLATE SODIUM
     Indication: Folate deficiency
  16. AZATHIOPRINE [Concomitant]
     Active Substance: AZATHIOPRINE
     Indication: Inflammatory bowel disease
  17. INFLIXIMAB [Concomitant]
     Active Substance: INFLIXIMAB
  18. THIAMINE HYDROCHLORIDE [Concomitant]
     Active Substance: THIAMINE HYDROCHLORIDE

REACTIONS (14)
  - Haemorrhage [Unknown]
  - Seborrhoeic dermatitis [Unknown]
  - COVID-19 [Unknown]
  - Abdominal pain [Unknown]
  - Eczema [Unknown]
  - Fatigue [Unknown]
  - Fistula [Unknown]
  - Off label use [Unknown]
  - Alopecia [Unknown]
  - Condition aggravated [Unknown]
  - Abscess [Unknown]
  - Pneumonia [Unknown]
  - Treatment failure [Unknown]
  - Crohn^s disease [Unknown]

NARRATIVE: CASE EVENT DATE: 20200501
